FAERS Safety Report 9735667 (Version 1)
Quarter: 2013Q4

REPORT INFORMATION
  Report Type: Spontaneous
  Country: US (occurrence: None)
  Receive Date: 20131204
  Receipt Date: 20131204
  Transmission Date: 20140711
  Serious: No
  Sender: FDA-Public Use
  Company Number: US-ZYDUS-002444

PATIENT
  Age: 58 Year
  Sex: Female

DRUGS (2)
  1. AMLODIPINE (AMLODIPINE) [Suspect]
  2. ZOLPIDEM (ZOLPIDEM) [Suspect]

REACTIONS (4)
  - Shock [None]
  - Overdose [None]
  - Atrial fibrillation [None]
  - Hypotension [None]
